FAERS Safety Report 10795459 (Version 1)
Quarter: 2015Q1

REPORT INFORMATION
  Report Type: Spontaneous
  Country: US (occurrence: US)
  Receive Date: 20150215
  Receipt Date: 20150215
  Transmission Date: 20150721
  Serious: Yes (Death, Other)
  Sender: FDA-Public Use
  Company Number: US-ACTAVIS-2015-01837

PATIENT
  Age: 28 Year
  Sex: Male

DRUGS (2)
  1. DIPHENHYDRAMINE (UNKNOWN) [Suspect]
     Active Substance: DIPHENHYDRAMINE
     Indication: SUICIDE ATTEMPT
     Dosage: UNK
     Route: 048
  2. DINITROPHENOL [Suspect]
     Active Substance: 2,4-DINITROPHENOL
     Indication: SUICIDE ATTEMPT
     Dosage: 4 G, SINGLE
     Route: 048

REACTIONS (8)
  - Completed suicide [Fatal]
  - Somnolence [Unknown]
  - Heart rate increased [Unknown]
  - Blood pressure increased [Unknown]
  - Toxicity to various agents [Fatal]
  - Agitation [Unknown]
  - Hyperhidrosis [Unknown]
  - Body temperature increased [Unknown]
